FAERS Safety Report 22042934 (Version 1)
Quarter: 2023Q1

REPORT INFORMATION
  Report Type: Spontaneous
  Country: IT (occurrence: IT)
  Receive Date: 20230228
  Receipt Date: 20230228
  Transmission Date: 20230417
  Serious: Yes (Hospitalization, Other)
  Sender: FDA-Public Use
  Company Number: None

PATIENT
  Age: 76 Year
  Sex: Female
  Weight: 68 kg

DRUGS (1)
  1. IMATINIB MESYLATE [Suspect]
     Active Substance: IMATINIB MESYLATE
     Indication: Chronic myeloid leukaemia
     Dosage: 400 MG ( ASSUNTO IL 2 DEGREE ANNO)
     Route: 048

REACTIONS (5)
  - Nausea [Unknown]
  - Alopecia [Unknown]
  - Arthralgia [Unknown]
  - Pain [Unknown]
  - Abdominal pain upper [Unknown]
